FAERS Safety Report 6399171-X (Version None)
Quarter: 2009Q4

REPORT INFORMATION
  Report Type: 
  Country: None (occurrence: None)
  Receive Date: 20091008
  Receipt Date: 20090925
  Transmission Date: 20100525
  Serious: Yes (Other)
  Sender: FDA-Public Use
  Company Number: 2009-03945

PATIENT
  Age: 58 Year
  Sex: Male

DRUGS (2)
  1. VELCADE [Suspect]
     Indication: DRUG USE FOR UNKNOWN INDICATION
     Dosage: 1.3 MG/M2
  2. DEXAMETHASONE 0.5MG TAB [Concomitant]

REACTIONS (3)
  - DISEASE PROGRESSION [None]
  - DRUG RESISTANCE [None]
  - GAMMOPATHY [None]
